FAERS Safety Report 5542019-3 (Version None)
Quarter: 2007Q4

REPORT INFORMATION
  Report Type: 
  Country: None (occurrence: None)
  Receive Date: 20071210
  Receipt Date: 20071130
  Transmission Date: 20080405
  Serious: Yes (Hospitalization)
  Sender: FDA-Public Use
  Company Number: JP-MERCK-0710USA03187

PATIENT
  Age: 50 Year
  Sex: Male
  Weight: 62 kg

DRUGS (11)
  1. PRIMAXIN [Suspect]
     Indication: ENDOPHTHALMITIS
     Route: 041
     Dates: start: 20070911, end: 20070917
  2. PRIMAXIN [Suspect]
     Route: 041
     Dates: start: 20070922, end: 20070925
  3. VANCOMYCIN HYDROCHLORIDE [Suspect]
     Indication: ENDOPHTHALMITIS
     Route: 042
     Dates: start: 20070911, end: 20070917
  4. GENTACIN [Suspect]
     Indication: ENDOPHTHALMITIS
     Route: 030
     Dates: start: 20070911, end: 20070917
  5. PANALDINE [Concomitant]
     Route: 048
  6. RENAGEL [Concomitant]
     Route: 048
  7. SENNOSIDES [Concomitant]
     Route: 048
  8. LASIX [Concomitant]
     Route: 048
  9. AMLODIN [Concomitant]
     Route: 048
  10. TAKEPRON [Concomitant]
     Route: 048
  11. MICARDIS [Concomitant]
     Route: 048

REACTIONS (2)
  - BONE MARROW FAILURE [None]
  - EOSINOPHIL COUNT INCREASED [None]
